FAERS Safety Report 19289695 (Version 2)
Quarter: 2021Q2

REPORT INFORMATION
  Report Type: Spontaneous
  Country: US (occurrence: US)
  Receive Date: 20210522
  Receipt Date: 20210615
  Transmission Date: 20210717
  Serious: No
  Sender: FDA-Public Use
  Company Number: US-GLAXOSMITHKLINE-US2021103251

PATIENT
  Sex: Female

DRUGS (1)
  1. FLOVENT HFA [Suspect]
     Active Substance: FLUTICASONE PROPIONATE
     Indication: BRONCHITIS CHRONIC
     Dosage: 2 PUFF(S), 1D
     Route: 055
     Dates: start: 20210429, end: 20210502

REACTIONS (4)
  - Underdose [Unknown]
  - Device use error [Unknown]
  - Product complaint [Unknown]
  - Product dose omission issue [Unknown]
